FAERS Safety Report 13616133 (Version 2)
Quarter: 2017Q2

REPORT INFORMATION
  Report Type: Spontaneous
  Country: US (occurrence: US)
  Receive Date: 20170606
  Receipt Date: 20170608
  Transmission Date: 20170830
  Serious: No
  Sender: FDA-Public Use
  Company Number: US-BAYER-2017-105554

PATIENT
  Age: 80 Year
  Sex: Female
  Weight: 99.79 kg

DRUGS (2)
  1. MIRALAX [Suspect]
     Active Substance: POLYETHYLENE GLYCOL 3350
     Dosage: UNK UNK, QOD
     Route: 048
  2. MIRALAX [Suspect]
     Active Substance: POLYETHYLENE GLYCOL 3350
     Dosage: UNK UNK, Q72HR
     Route: 048

REACTIONS (3)
  - Product quality issue [None]
  - Off label use [Unknown]
  - Product use issue [Unknown]
